FAERS Safety Report 5053922-5 (Version None)
Quarter: 2006Q2

REPORT INFORMATION
  Report Type: 
  Country: None (occurrence: None)
  Receive Date: 20060614
  Receipt Date: 20060330
  Transmission Date: 20061013
  Serious: Yes (Other)
  Sender: FDA-Public Use
  Company Number: 442585

PATIENT
  Age: 64 Year
  Sex: Female

DRUGS (3)
  1. BONIVA [Suspect]
     Indication: DRUG USE FOR UNKNOWN INDICATION
     Dates: start: 20060615
  2. NEXIUM [Concomitant]
  3. NORVASC [Concomitant]

REACTIONS (2)
  - BONE PAIN [None]
  - MUSCULOSKELETAL PAIN [None]
